FAERS Safety Report 11268247 (Version 2)
Quarter: 2015Q3

REPORT INFORMATION
  Report Type: Spontaneous
  Country: US (occurrence: US)
  Receive Date: 20150714
  Receipt Date: 20150729
  Transmission Date: 20151125
  Serious: Yes (Hospitalization)
  Sender: FDA-Public Use
  Company Number: US-ROCHE-1605986

PATIENT
  Age: 59 Year
  Sex: Female

DRUGS (4)
  1. XANAX [Concomitant]
     Active Substance: ALPRAZOLAM
     Indication: PANIC ATTACK
     Route: 065
     Dates: start: 1999
  2. KLONOPIN [Suspect]
     Active Substance: CLONAZEPAM
     Indication: PANIC DISORDER
     Dosage: SHE TAKES CLONAZEPAM IN THE MORNING. SHE TAKES HALF OF ONE CLONAZEPAM AT BEDTIME NOW.
     Route: 065
     Dates: start: 2009
  3. LYRICA [Suspect]
     Active Substance: PREGABALIN
     Indication: FIBROMYALGIA
     Dosage: ONE IN THE MORNING, TWO AT NOON AND ONE AT BEDTIME
     Route: 065
  4. TRAMADOL. [Concomitant]
     Active Substance: TRAMADOL
     Indication: HEADACHE
     Route: 065
     Dates: start: 2009

REACTIONS (8)
  - Blood glucose decreased [Not Recovered/Not Resolved]
  - Mental disorder [Recovered/Resolved]
  - Ketoacidosis [Recovered/Resolved]
  - Goitre [Not Recovered/Not Resolved]
  - Dysphagia [Recovered/Resolved]
  - Coma [Recovered/Resolved]
  - Pancreatic insufficiency [Not Recovered/Not Resolved]
  - Hyperhidrosis [Recovered/Resolved]

NARRATIVE: CASE EVENT DATE: 2011
